FAERS Safety Report 8925723 (Version 2)
Quarter: 2012Q4

REPORT INFORMATION
  Report Type: 
  Country: UY (occurrence: UY)
  Receive Date: 20121126
  Receipt Date: 20121207
  Transmission Date: 20130627
  Serious: Yes (Hospitalization, Other)
  Sender: FDA-Public Use
  Company Number: UY-ABBOTT-12P-168-0991842-00

PATIENT
  Sex: Female

DRUGS (8)
  1. HUMIRA [Suspect]
     Indication: RHEUMATOID ARTHRITIS
     Route: 058
     Dates: start: 2011
  2. LORATADINE [Concomitant]
     Indication: HYPERSENSITIVITY
     Route: 048
  3. NASAL DESCONGESTIVEL [Concomitant]
     Indication: RHINITIS
     Route: 045
     Dates: end: 20121002
  4. METHOTREXATE [Concomitant]
     Indication: RHEUMATOID ARTHRITIS
     Dosage: 15mg per week
     Route: 048
  5. HYDROXICHLOROQUINE [Concomitant]
     Indication: RHEUMATOID ARTHRITIS
     Route: 048
  6. METIREL [Concomitant]
     Indication: PRODUCT USED FOR UNKNOWN INDICATION
  7. PREGABALIN [Concomitant]
     Indication: PRODUCT USED FOR UNKNOWN INDICATION
  8. KEPTOFREN [Concomitant]
     Indication: FIBROMYALGIA
     Route: 050

REACTIONS (6)
  - Chronic sinusitis [Recovered/Resolved]
  - Headache [Unknown]
  - Rhinorrhoea [Unknown]
  - Anosmia [Not Recovered/Not Resolved]
  - Muscle spasms [Unknown]
  - Spinal pain [Unknown]
